FAERS Safety Report 10388264 (Version 2)
Quarter: 2014Q3

REPORT INFORMATION
  Report Type: Spontaneous
  Country: US (occurrence: US)
  Receive Date: 20140815
  Receipt Date: 20140909
  Transmission Date: 20150326
  Serious: No
  Sender: FDA-Public Use
  Company Number: US-009507513-1408USA007283

PATIENT
  Age: 21 Year
  Sex: Female
  Weight: 63.39 kg

DRUGS (1)
  1. NEXPLANON [Suspect]
     Active Substance: ETONOGESTREL
     Dosage: UNK
     Route: 059
     Dates: start: 20140801

REACTIONS (3)
  - Device dislocation [Not Recovered/Not Resolved]
  - Pain in extremity [Unknown]
  - Nerve compression [Unknown]

NARRATIVE: CASE EVENT DATE: 201408
